FAERS Safety Report 16970823 (Version 1)
Quarter: 2019Q4

REPORT INFORMATION
  Report Type: Spontaneous
  Country: US (occurrence: US)
  Receive Date: 20190912
  Receipt Date: 20190912
  Transmission Date: 20200122
  Serious: Yes (Life-Threatening, Hospitalization, Disabling, Other)
  Sender: FDA-Public Use
  Company Number: None

PATIENT
  Age: 70 Year
  Sex: Female
  Weight: 95.25 kg

DRUGS (12)
  1. OS CAL [Concomitant]
  2. INSULIN LISPRO (HUMALOG) [Concomitant]
  3. CENTRUM VITAMINS [Concomitant]
  4. ENBREL [Concomitant]
     Active Substance: ETANERCEPT
  5. INSULIN GLARGINE PEN INJECTOR (LANTUS SOLOSTAR) [Concomitant]
  6. COSENTYX [Suspect]
     Active Substance: SECUKINUMAB
     Indication: THERAPY CHANGE
     Dosage: ?          QUANTITY:300 MG MILLIGRAM(S);?
     Route: 058
     Dates: start: 20190103, end: 20190326
  7. FISH OIL [Concomitant]
     Active Substance: FISH OIL
  8. ASPIRIN. [Concomitant]
     Active Substance: ASPIRIN
  9. CRESTOR [Concomitant]
     Active Substance: ROSUVASTATIN CALCIUM
  10. TAZORAC [Concomitant]
     Active Substance: TAZAROTENE
  11. FEBUXOSTAT. [Concomitant]
     Active Substance: FEBUXOSTAT
  12. VALSARTAN (DIOVAN) [Concomitant]

REACTIONS (9)
  - Lethargy [None]
  - Fatigue [None]
  - Tooth infection [None]
  - Transient global amnesia [None]
  - Tooth fracture [None]
  - Diplopia [None]
  - Therapy cessation [None]
  - Transient ischaemic attack [None]
  - Oropharyngeal pain [None]

NARRATIVE: CASE EVENT DATE: 20190103
